FAERS Safety Report 24869566 (Version 1)
Quarter: 2025Q1

REPORT INFORMATION
  Report Type: Spontaneous
  Country: FR (occurrence: FR)
  Receive Date: 20250121
  Receipt Date: 20250121
  Transmission Date: 20250408
  Serious: Yes (Other)
  Sender: FRESENIUS KABI
  Company Number: None

PATIENT
  Age: 71 Year
  Sex: Female
  Weight: 48.5 kg

DRUGS (18)
  1. PACLITAXEL [Suspect]
     Active Substance: PACLITAXEL
     Indication: Triple negative breast cancer
     Dosage: 126 MG BY 1-HOUR IV INFUSION?ROA: INTRAVENOUS (NOT OTHERWISE SPECIFIED)
     Dates: start: 20241028, end: 20241028
  2. / KEYTRUDA 25 mg/mL, solution for diluted infusion [Concomitant]
     Indication: Triple negative breast cancer
     Dosage: 200MG IV INFUSION OVER 30 MIN?ROA: INTRAVENOUS (NOT OTHERWISE SPECIFIED)
     Dates: start: 20241028
  3. CARBOPLATIN [Concomitant]
     Active Substance: CARBOPLATIN
     Indication: Triple negative breast cancer
     Dosage: 130 MG BY 1-HOUR IV INFUSION?ROA: INTRAVENOUS (NOT OTHERWISE SPECIFIED)
     Dates: start: 20241028, end: 20241210
  4. CARBOPLATIN [Concomitant]
     Active Substance: CARBOPLATIN
     Dosage: 94 MG 1-HOUR IV INFUSION?ROA: INTRAVENOUS (NOT OTHERWISE SPECIFIED)
     Dates: start: 20241210
  5. DEXAMETHASONE [Concomitant]
     Active Substance: DEXAMETHASONE
     Indication: Allergy prophylaxis
     Dates: start: 20241028
  6. DEXCHLORPHENIRAMINE MALEATE [Concomitant]
     Active Substance: DEXCHLORPHENIRAMINE MALEATE
     Indication: Allergy prophylaxis
     Dates: start: 20241028
  7. APREPITANT [Concomitant]
     Active Substance: APREPITANT
     Indication: Prophylaxis of nausea and vomiting
     Dates: start: 20241028
  8. APREPITANT [Concomitant]
     Active Substance: APREPITANT
     Dates: start: 20241028
  9. ONDANSETRON [Concomitant]
     Active Substance: ONDANSETRON
     Indication: Prophylaxis of nausea and vomiting
     Dates: start: 20241028
  10. METOCLOPRAMIDE [Concomitant]
     Active Substance: METOCLOPRAMIDE
     Indication: Prophylaxis of nausea and vomiting
     Dates: start: 20241028
  11. FERINJECT [Concomitant]
     Active Substance: FERRIC CARBOXYMALTOSE
     Indication: Product used for unknown indication
  12. LEVOTHYROX 50 microgram, scored tablet [Concomitant]
     Indication: Hypothyroidism
     Dosage: 1 TABLET/D ?ROA: ORAL
  13. KARDEGIC 75 mg, powder for oral solution in sachet [Concomitant]
     Indication: Product used for unknown indication
     Dosage: 1 SACHET/ DAY?ROA: ORAL
  14. PANTOPRAZOLE [Concomitant]
     Active Substance: PANTOPRAZOLE
     Indication: Product used for unknown indication
     Dosage: 1 TABLET PER DAY?ROA: ORAL
  15. LITHIUM [Concomitant]
     Active Substance: LITHIUM
     Indication: Bipolar disorder
     Dosage: 2 TABLET IN THE MORNING?ROA: ORAL
  16. QUETIAPINE [Concomitant]
     Active Substance: QUETIAPINE
     Indication: Product used for unknown indication
     Dosage: 3 TABLET IN THE EVENING?ROA: ORAL
  17. TRIMEPRAZINE TARTRATE [Concomitant]
     Active Substance: TRIMEPRAZINE TARTRATE
     Indication: Insomnia
     Dosage: 3 TABLET IN THE EVENING?ROA: ORAL
  18. ZYMAD 50 000 IU, oral solution in ampoule [Concomitant]
     Indication: Product used for unknown indication
     Dosage: 1 AMPOULE PER MONTH?ROA: ORAL

REACTIONS (1)
  - Anaphylactic reaction [Recovered/Resolved]

NARRATIVE: CASE EVENT DATE: 20241028
